FAERS Safety Report 25395781 (Version 1)
Quarter: 2025Q2

REPORT INFORMATION
  Report Type: Spontaneous
  Country: JP (occurrence: JP)
  Receive Date: 20250604
  Receipt Date: 20250604
  Transmission Date: 20250717
  Serious: Yes (Other)
  Sender: WAYLIS THERAPEUTICS
  Company Number: JP-WAYLIS-2025-JP-000078

PATIENT
  Sex: Male

DRUGS (1)
  1. RABEPRAZOLE SODIUM [Suspect]
     Active Substance: RABEPRAZOLE SODIUM
     Indication: Gastrooesophageal reflux disease
     Route: 048

REACTIONS (2)
  - Gastric subepithelial neoplasm [Unknown]
  - Gastrointestinal disorder [Unknown]
